FAERS Safety Report 4489806-0 (Version None)
Quarter: 2004Q4

REPORT INFORMATION
  Report Type: 
  Country: None (occurrence: None)
  Receive Date: 20041101
  Receipt Date: 20041020
  Transmission Date: 20050328
  Serious: Yes (Death, Hospitalization)
  Sender: FDA-Public Use
  Company Number: GB-MERCK-0410GBR00228

PATIENT
  Age: 75 Year
  Sex: Male

DRUGS (3)
  1. VIOXX [Suspect]
     Indication: ARTHRALGIA
     Route: 048
     Dates: start: 20030101
  2. PRAVASTATIN SODIUM [Concomitant]
     Route: 065
     Dates: start: 20020101
  3. BISOPROLOL [Concomitant]
     Route: 065
     Dates: start: 20030101

REACTIONS (4)
  - BONE MARROW DEPRESSION [None]
  - HEPATIC FAILURE [None]
  - HEPATITIS FULMINANT [None]
  - HERPES SIMPLEX [None]
